FAERS Safety Report 6912897-1 (Version None)
Quarter: 2010Q3

REPORT INFORMATION
  Report Type: 
  Country: None (occurrence: None)
  Receive Date: 20100806
  Receipt Date: 20090227
  Transmission Date: 20110219
  Serious: No
  Sender: FDA-Public Use
  Company Number: US-PFIZER INC-2008156289

PATIENT
  Sex: Female

DRUGS (2)
  1. GLUCOTROL [Suspect]
     Indication: DIABETES MELLITUS
  2. AVANDIA [Suspect]
     Indication: DIABETES MELLITUS

REACTIONS (1)
  - DRUG INEFFECTIVE [None]
